FAERS Safety Report 9799458 (Version 1)
Quarter: 2014Q1

REPORT INFORMATION
  Report Type: Spontaneous
  Country: IT (occurrence: IT)
  Receive Date: 20140106
  Receipt Date: 20140106
  Transmission Date: 20141002
  Serious: Yes (Hospitalization)
  Sender: FDA-Public Use
  Company Number: IT-TEVA-453558ISR

PATIENT
  Age: 76 Year
  Sex: Male

DRUGS (3)
  1. METFORMIN [Suspect]
     Indication: TYPE 2 DIABETES MELLITUS
     Route: 065
  2. LEVOFLOXACIN [Suspect]
     Route: 065
  3. UNSPECIFIED ACE INHIBITOR AND DIURETIC [Concomitant]
     Indication: HYPERTENSION

REACTIONS (7)
  - Toxicity to various agents [Recovered/Resolved]
  - Dyspnoea [Unknown]
  - Metabolic acidosis [Unknown]
  - Hypoglycaemia [Unknown]
  - Tubulointerstitial nephritis [Recovered/Resolved]
  - Nephritis [Recovered/Resolved]
  - Hyperlactacidaemia [Unknown]
